FAERS Safety Report 9867581 (Version 1)
Quarter: 2014Q1

REPORT INFORMATION
  Report Type: Spontaneous
  Country: US (occurrence: US)
  Receive Date: 20140204
  Receipt Date: 20140204
  Transmission Date: 20141002
  Serious: No
  Sender: FDA-Public Use
  Company Number: US-GALDERMA-US13002851

PATIENT
  Age: 21 Year
  Sex: Female

DRUGS (6)
  1. EPIDUO (ADAPALENE, BENZOYL PEROXIDE) GEL 0.1% / 2.5% [Suspect]
     Indication: ACNE
     Route: 061
     Dates: start: 201305
  2. CETAPHIL DAILY FACIAL MOISTURIZER SPF15 [Suspect]
     Indication: DRY SKIN PROPHYLAXIS
     Route: 061
     Dates: start: 201305
  3. ZIANA [Suspect]
     Indication: ACNE
     Route: 061
     Dates: start: 201305, end: 201305
  4. CETAPHIL MOISTURIZING LOTION [Concomitant]
     Indication: DRY SKIN PROPHYLAXIS
     Route: 061
     Dates: start: 2012
  5. LANCOME RENERGIE LIFT MAKEUP [Concomitant]
     Route: 061
  6. SULFUR SOAP FOR ACNE [Concomitant]
     Indication: THERAPEUTIC SKIN CARE TOPICAL
     Route: 061

REACTIONS (4)
  - Skin burning sensation [Not Recovered/Not Resolved]
  - Dry skin [Not Recovered/Not Resolved]
  - Paraesthesia [Not Recovered/Not Resolved]
  - Drug ineffective [Not Recovered/Not Resolved]
